FAERS Safety Report 21734539 (Version 3)
Quarter: 2024Q4

REPORT INFORMATION
  Report Type: Spontaneous
  Country: US (occurrence: US)
  Receive Date: 20221215
  Receipt Date: 20241127
  Transmission Date: 20250115
  Serious: No
  Sender: PFIZER
  Company Number: US-PFIZER INC-PV202200123158

PATIENT
  Age: 68 Year
  Sex: Female
  Weight: 70.31 kg

DRUGS (2)
  1. IBRANCE [Suspect]
     Active Substance: PALBOCICLIB
     Indication: Breast cancer
     Dosage: 125 MG, CYCLIC (ONE TABLET ONCE DAILY WITH OR WITHOUT FOOD FOR 21 DAYS ON AND 7 DAYS OFF)
     Route: 048
  2. IBRANCE [Suspect]
     Active Substance: PALBOCICLIB
     Indication: Dyspnoea

REACTIONS (2)
  - Memory impairment [Unknown]
  - Off label use [Unknown]
